FAERS Safety Report 4299915-7 (Version None)
Quarter: 2004Q1

REPORT INFORMATION
  Report Type: 
  Country: None (occurrence: None)
  Receive Date: 20040218
  Receipt Date: 20040205
  Transmission Date: 20041129
  Serious: Yes (Hospitalization)
  Sender: FDA-Public Use
  Company Number: BE-JNJFOC-20040201559

PATIENT
  Age: 69 Year
  Sex: Female

DRUGS (1)
  1. PREPULSID (CISAPRIDE) TABLETS [Suspect]
     Indication: IMPAIRED GASTRIC EMPTYING
     Dosage: 10 MG, 3 IN 1 DAY
     Dates: start: 20030617

REACTIONS (1)
  - HOSPITALISATION [None]
